FAERS Safety Report 13414073 (Version 1)
Quarter: 2017Q2

REPORT INFORMATION
  Report Type: Spontaneous
  Country: US (occurrence: US)
  Receive Date: 20170407
  Receipt Date: 20170407
  Transmission Date: 20170830
  Serious: Yes (Other)
  Sender: FDA-Public Use
  Company Number: None

PATIENT
  Age: 52 Year
  Sex: Female
  Weight: 55.8 kg

DRUGS (1)
  1. CEFDINIR. [Suspect]
     Active Substance: CEFDINIR
     Indication: EAR INFECTION
     Dosage: ?          QUANTITY:14 CAPSULE(S); TWICE A DAY ORAL?
     Route: 048
     Dates: start: 20170405, end: 20170407

REACTIONS (1)
  - Haemorrhage [None]

NARRATIVE: CASE EVENT DATE: 20170406
